FAERS Safety Report 21897118 (Version 1)
Quarter: 2023Q1

REPORT INFORMATION
  Report Type: Spontaneous
  Country: US (occurrence: US)
  Receive Date: 20230123
  Receipt Date: 20230123
  Transmission Date: 20230417
  Serious: Yes (Hospitalization)
  Sender: FDA-Public Use
  Company Number: US-GSKCCFUS-Case-01604495_AE-90670

PATIENT

DRUGS (1)
  1. FLOVENT HFA [Suspect]
     Active Substance: FLUTICASONE PROPIONATE
     Indication: Asthma
     Dosage: 3 PUFF(S), BID
     Route: 055

REACTIONS (6)
  - Asthma [Unknown]
  - Wheezing [Unknown]
  - Crepitations [Unknown]
  - Secretion discharge [Unknown]
  - Therapy cessation [Unknown]
  - Drug ineffective [Unknown]
